FAERS Safety Report 18925037 (Version 1)
Quarter: 2021Q1

REPORT INFORMATION
  Report Type: Spontaneous
  Country: TN (occurrence: TN)
  Receive Date: 20210222
  Receipt Date: 20210222
  Transmission Date: 20210420
  Serious: Yes (Other)
  Sender: FDA-Public Use
  Company Number: TN-ANIPHARMA-2021-TN-000005

PATIENT
  Age: 52 Year
  Sex: Female

DRUGS (1)
  1. CLOPIDOGREL BISULFATE (NON?SPECIFIC) [Suspect]
     Active Substance: CLOPIDOGREL BISULFATE
     Indication: SJOGREN^S SYNDROME

REACTIONS (2)
  - Medication error [Unknown]
  - Systemic lupus erythematosus [Unknown]
